FAERS Safety Report 21472392 (Version 2)
Quarter: 2022Q4

REPORT INFORMATION
  Report Type: Report from Study
  Country: AT (occurrence: AT)
  Receive Date: 20221018
  Receipt Date: 20221214
  Transmission Date: 20230113
  Serious: Yes (Hospitalization, Other)
  Sender: FDA-Public Use
  Company Number: AT-ROCHE-3110946

PATIENT
  Age: 60 Year
  Sex: Female

DRUGS (32)
  1. TRASTUZUMAB DERUXTECAN [Suspect]
     Active Substance: TRASTUZUMAB DERUXTECAN
     Indication: HER2 positive breast cancer
     Dosage: 5.4 MG/KG, ONCE EVERY 3 WK
     Route: 040
     Dates: start: 20211230, end: 20220419
  2. TRASTUZUMAB DERUXTECAN [Suspect]
     Active Substance: TRASTUZUMAB DERUXTECAN
     Dosage: 4.4 MG/KG, ONCE EVERY 3 WK
     Route: 040
     Dates: start: 20220623
  3. TRASTUZUMAB [Suspect]
     Active Substance: TRASTUZUMAB
     Indication: HER2 positive breast cancer
     Dosage: 8 MILLIGRAM/KILOGRAM, FREQUENCY: OTHER MOST RECENT DOSE PRIOR TO THE EVENT: 23/MAR/2020
     Route: 040
     Dates: start: 20171103, end: 20171103
  4. TRASTUZUMAB [Suspect]
     Active Substance: TRASTUZUMAB
     Dosage: 6 MG/KG, ONCE EVERY 3 WK
     Route: 040
     Dates: start: 20171124, end: 20190426
  5. TRASTUZUMAB [Suspect]
     Active Substance: TRASTUZUMAB
     Dosage: 600 MG, ONCE EVERY 3 WK
     Route: 040
     Dates: start: 20200323, end: 20211202
  6. PERTUZUMAB [Suspect]
     Active Substance: PERTUZUMAB
     Indication: HER2 positive breast cancer
     Dosage: 480 MG, QD, MOST RECENT DOSE PRIOR TO THE EVENT: 24/NOV/2017
     Route: 040
     Dates: start: 20171103, end: 20171103
  7. PERTUZUMAB [Suspect]
     Active Substance: PERTUZUMAB
     Dosage: 420 MG, ONCE EVERY 3 WK, MOST RECENT DOSE PRIOR TO AE 26/APR/2019
     Route: 040
     Dates: start: 20171124
  8. VINORELBINE [Suspect]
     Active Substance: VINORELBINE TARTRATE
     Indication: HER2 positive breast cancer
     Dosage: 100 MG, ONCE EVERY 1 WK
     Route: 048
     Dates: start: 20171103, end: 20171124
  9. VINORELBINE [Suspect]
     Active Substance: VINORELBINE TARTRATE
     Dosage: 120 MG, ONCE EVERY 1 WK
     Route: 048
     Dates: start: 20171124, end: 20180629
  10. CAPECITABINE [Suspect]
     Active Substance: CAPECITABINE
     Indication: HER2 positive breast cancer
     Dosage: 500 MG, BID, MOST RECENT DOSE PRIOR TO THE EVENT: 19/AUG/2020
     Route: 048
     Dates: start: 20200323, end: 20200506
  11. CAPECITABINE [Suspect]
     Active Substance: CAPECITABINE
     Dosage: 500 MG, BID
     Route: 048
     Dates: start: 20200506, end: 20200719
  12. CAPECITABINE [Suspect]
     Active Substance: CAPECITABINE
     Dosage: 500 MG, BID
     Route: 048
     Dates: start: 20200819, end: 20211202
  13. ADO-TRASTUZUMAB EMTANSINE [Suspect]
     Active Substance: ADO-TRASTUZUMAB EMTANSINE
     Indication: HER2 positive breast cancer
     Dosage: 3.6 MG, ONCE EVERY 3 WK
     Route: 040
     Dates: start: 20190531, end: 20191105
  14. ADO-TRASTUZUMAB EMTANSINE [Suspect]
     Active Substance: ADO-TRASTUZUMAB EMTANSINE
     Dosage: 3.2 MG, ONCE EVERY 3 WK
     Route: 040
     Dates: start: 20191106, end: 20200323
  15. TUCATINIB [Suspect]
     Active Substance: TUCATINIB
     Indication: HER2 positive breast cancer
     Dosage: 150 MG, BID
     Route: 040
     Dates: start: 20210528, end: 20211202
  16. HYALURONIDASE (HUMAN RECOMBINANT)\TRASTUZUMAB [Suspect]
     Active Substance: HYALURONIDASE (HUMAN RECOMBINANT)\TRASTUZUMAB
     Indication: HER2 positive breast cancer
     Dosage: 600 MG, ONCE EVERY 3 WK, MOST RECENT DOSE PRIOR TO AE 02/DEC/2021
     Route: 058
     Dates: start: 20200323
  17. FILGRASTIM [Concomitant]
     Active Substance: FILGRASTIM
     Indication: Product used for unknown indication
     Dosage: UNK
     Route: 065
     Dates: start: 20200527
  18. ALPRAZOLAM [Concomitant]
     Active Substance: ALPRAZOLAM
     Indication: Product used for unknown indication
     Dosage: UNK
     Route: 065
     Dates: start: 20220519
  19. NOVALGIN (METAMIZOLE SODIUM) [Concomitant]
     Active Substance: METAMIZOLE SODIUM
     Indication: Product used for unknown indication
     Dosage: UNK
     Route: 065
     Dates: start: 20200323
  20. DEXAMETHASONE [Concomitant]
     Active Substance: DEXAMETHASONE
     Indication: Product used for unknown indication
     Dosage: UNK
     Route: 065
     Dates: start: 20201210
  21. DEXAMETHASONE [Concomitant]
     Active Substance: DEXAMETHASONE
     Dosage: UNK
     Route: 065
     Dates: start: 20211029
  22. HYDROMORPHONE HYDROCHLORIDE [Concomitant]
     Active Substance: HYDROMORPHONE HYDROCHLORIDE
     Indication: Product used for unknown indication
     Dosage: UNK
     Route: 065
     Dates: start: 20200323
  23. POLYETHYLENE GLYCOL 3350\POTASSIUM CHLORIDE\SODIUM BICARBONATE\SODIUM [Concomitant]
     Active Substance: POLYETHYLENE GLYCOL 3350\POTASSIUM CHLORIDE\SODIUM BICARBONATE\SODIUM CHLORIDE
     Indication: Product used for unknown indication
     Dosage: UNK
     Route: 065
     Dates: start: 20200323
  24. METOCLOPRAMIDE HYDROCHLORIDE [Concomitant]
     Active Substance: METOCLOPRAMIDE HYDROCHLORIDE
     Indication: Product used for unknown indication
     Dosage: UNK
     Route: 065
     Dates: start: 20200323
  25. LOPERAMIDE HYDROCHLORIDE [Concomitant]
     Active Substance: LOPERAMIDE HYDROCHLORIDE
     Indication: Diarrhoea
     Dosage: UNK
     Route: 065
     Dates: start: 20210528
  26. PREDNISOLONE [Concomitant]
     Active Substance: PREDNISOLONE
     Indication: Product used for unknown indication
     Dosage: 35 MG, QD
     Route: 065
     Dates: start: 20220512
  27. ULCOSTAD [Concomitant]
     Indication: Product used for unknown indication
     Dosage: UNK
     Route: 065
     Dates: start: 20201210
  28. HYALURONATE SODIUM\TREHALOSE [Concomitant]
     Active Substance: HYALURONATE SODIUM\TREHALOSE
     Indication: Product used for unknown indication
     Dosage: UNK
     Route: 065
     Dates: start: 20191024, end: 20191027
  29. BETAMETHASONE [Concomitant]
     Active Substance: BETAMETHASONE
     Indication: Product used for unknown indication
     Dosage: UNK
     Route: 065
     Dates: start: 20191027, end: 20191027
  30. BETAMETHASONE [Concomitant]
     Active Substance: BETAMETHASONE
     Dosage: UNK
     Route: 065
     Dates: start: 20191024, end: 20191127
  31. DICLOFENAC SODIUM\ORPHENADRINE CITRATE [Concomitant]
     Active Substance: DICLOFENAC SODIUM\ORPHENADRINE CITRATE
     Indication: Product used for unknown indication
     Dosage: 350 MILLIGRAM
     Route: 065
     Dates: start: 20200729
  32. DICLOFENAC SODIUM [Concomitant]
     Active Substance: DICLOFENAC SODIUM
     Indication: Product used for unknown indication
     Dosage: UNK
     Route: 065

REACTIONS (2)
  - Tachycardia [Recovered/Resolved]
  - Pneumonitis [Recovered/Resolved]

NARRATIVE: CASE EVENT DATE: 20220512
